FAERS Safety Report 7653637-0 (Version None)
Quarter: 2011Q3

REPORT INFORMATION
  Report Type: 
  Country: None (occurrence: None)
  Receive Date: 20110803
  Receipt Date: 20110803
  Transmission Date: 20111222
  Serious: Yes (Hospitalization)
  Sender: FDA-Public Use
  Company Number: None

PATIENT
  Age: 69 Year
  Sex: Male
  Weight: 75 kg

DRUGS (2)
  1. EFFIENT [Suspect]
     Indication: CORONARY ARTERIAL STENT INSERTION
     Dosage: 10 MG
     Route: 048
     Dates: start: 20110728, end: 20110731
  2. EFFIENT [Suspect]
     Indication: CORONARY ANGIOPLASTY
     Dosage: 10 MG
     Route: 048
     Dates: start: 20110728, end: 20110731

REACTIONS (1)
  - INTRAVENTRICULAR HAEMORRHAGE [None]
